FAERS Safety Report 8162582-6 (Version None)
Quarter: 2012Q1

REPORT INFORMATION
  Report Type: 
  Country: None (occurrence: None)
  Receive Date: 20120224
  Receipt Date: 20120215
  Transmission Date: 20120608
  Serious: Yes (Other)
  Sender: FDA-Public Use
  Company Number: BR-JNJFOC-20120209028

PATIENT
  Sex: Female
  Weight: 77.5 kg

DRUGS (4)
  1. FLUOXETINE [Concomitant]
     Route: 048
  2. REMICADE [Suspect]
     Route: 042
     Dates: start: 20100701
  3. REMICADE [Suspect]
     Indication: CROHN'S DISEASE
     Route: 042
     Dates: start: 20111213
  4. MEBEVERINE [Concomitant]
     Route: 048

REACTIONS (5)
  - DYSPNOEA [None]
  - RASH [None]
  - THROAT TIGHTNESS [None]
  - HEAD DISCOMFORT [None]
  - INFUSION RELATED REACTION [None]
